FAERS Safety Report 7511752-6 (Version None)
Quarter: 2011Q2

REPORT INFORMATION
  Report Type: 
  Country: None (occurrence: None)
  Receive Date: 20110531
  Receipt Date: 20110519
  Transmission Date: 20111010
  Serious: Yes (Hospitalization)
  Sender: FDA-Public Use
  Company Number: FR-JNJFOC-20110512015

PATIENT
  Sex: Female

DRUGS (4)
  1. LASIX [Concomitant]
  2. AMLODIPINE BESYLATE [Concomitant]
  3. PANTOPRAZOLE [Concomitant]
  4. TRAMADOL HCL [Suspect]
     Indication: PAIN
     Route: 048
     Dates: start: 20110301

REACTIONS (3)
  - DECREASED APPETITE [None]
  - ABDOMINAL PAIN UPPER [None]
  - GENERAL PHYSICAL HEALTH DETERIORATION [None]
